FAERS Safety Report 10900258 (Version 1)
Quarter: 2015Q1

REPORT INFORMATION
  Report Type: Spontaneous
  Country: US (occurrence: US)
  Receive Date: 20150310
  Receipt Date: 20150310
  Transmission Date: 20150721
  Serious: Yes (Other)
  Sender: FDA-Public Use
  Company Number: US-SUN PHARMACEUTICAL INDUSTRIES LTD-2013SUN04999

PATIENT

DRUGS (3)
  1. SUMATRIPTAN SUCCINATE INJECTION 6 MG/0.5 ML [Suspect]
     Active Substance: SUMATRIPTAN SUCCINATE
     Indication: MIGRAINE
     Dosage: 6 MG, NOT EXCEED TWO DOSES WITHIN 24 HOURS
     Route: 065
  2. TOPAMAX [Concomitant]
     Active Substance: TOPIRAMATE
  3. SUMATRIPTAN SUCCINATE INJECTION 6 MG/0.5 ML [Suspect]
     Active Substance: SUMATRIPTAN SUCCINATE
     Dosage: 6 MG, NOT EXCEED TWO DOSES WITHIN 24 HOURS
     Route: 065

REACTIONS (6)
  - Injection site erythema [Recovering/Resolving]
  - Injection site scar [Recovering/Resolving]
  - Injection site irritation [Recovering/Resolving]
  - Injection site inflammation [Recovering/Resolving]
  - Device issue [Unknown]
  - Injection site infection [Recovering/Resolving]

NARRATIVE: CASE EVENT DATE: 20130917
